FAERS Safety Report 15293637 (Version 1)
Quarter: 2018Q3

REPORT INFORMATION
  Report Type: Spontaneous
  Country: US (occurrence: US)
  Receive Date: 20180807
  Receipt Date: 20180807
  Transmission Date: 20181010
  Serious: Yes (Disabling)
  Sender: FDA-Public Use
  Company Number: None

PATIENT
  Age: 47 Year
  Sex: Female
  Weight: 103.95 kg

DRUGS (9)
  1. LIPITOR [Concomitant]
     Active Substance: ATORVASTATIN CALCIUM
  2. GLIPIZIDE. [Concomitant]
     Active Substance: GLIPIZIDE
  3. VALSARTAN. [Suspect]
     Active Substance: VALSARTAN
     Indication: HYPERTENSION
     Dosage: ?          QUANTITY:1 TABLET(S);?
     Route: 048
     Dates: start: 20180306, end: 20180718
  4. TYLENOL [Concomitant]
     Active Substance: ACETAMINOPHEN
  5. METFORMIN [Concomitant]
     Active Substance: METFORMIN HYDROCHLORIDE
  6. ASPIRIN. [Concomitant]
     Active Substance: ASPIRIN
  7. LOSARTAN. [Concomitant]
     Active Substance: LOSARTAN
  8. IBUPROFEN. [Concomitant]
     Active Substance: IBUPROFEN
  9. HYGROTON [Concomitant]
     Active Substance: CHLORTHALIDONE

REACTIONS (5)
  - Hepatic mass [None]
  - Respiratory disorder [None]
  - Intestinal mass [None]
  - Abdominal pain [None]
  - Pulmonary mass [None]

NARRATIVE: CASE EVENT DATE: 20180718
